FAERS Safety Report 12704602 (Version 1)
Quarter: 2016Q3

REPORT INFORMATION
  Report Type: Spontaneous
  Country: US (occurrence: US)
  Receive Date: 20160831
  Receipt Date: 20160831
  Transmission Date: 20161109
  Serious: No
  Sender: FDA-Public Use
  Company Number: US-PURDUE-USA-2016-0132416

PATIENT
  Sex: Male

DRUGS (2)
  1. GABAPENTIN. [Interacting]
     Active Substance: GABAPENTIN
     Indication: PRODUCT USED FOR UNKNOWN INDICATION
     Dosage: 100 MG, TID
     Route: 065
  2. OXYCODONE/ ACETAMINOPHEN TABLETS [Suspect]
     Active Substance: ACETAMINOPHEN\OXYCODONE HYDROCHLORIDE
     Indication: PAIN
     Dosage: 10/325 MG, UNK
     Route: 048

REACTIONS (11)
  - Unevaluable event [Unknown]
  - Pain [Unknown]
  - Tremor [Unknown]
  - Nervous system disorder [Unknown]
  - Insomnia [Unknown]
  - Muscle twitching [Unknown]
  - Drug interaction [Unknown]
  - Feeling abnormal [Unknown]
  - Restlessness [Unknown]
  - Malaise [Unknown]
  - Back pain [Unknown]
